FAERS Safety Report 16238669 (Version 3)
Quarter: 2019Q4

REPORT INFORMATION
  Report Type: Spontaneous
  Country: US (occurrence: US)
  Receive Date: 20190425
  Receipt Date: 20191014
  Transmission Date: 20200122
  Serious: Yes (Other)
  Sender: FDA-Public Use
  Company Number: US-PFIZER INC-2019174648

PATIENT
  Age: 68 Year
  Sex: Female
  Weight: 61.23 kg

DRUGS (6)
  1. DETROL LA [Suspect]
     Active Substance: TOLTERODINE TARTRATE
     Indication: BACK DISORDER
  2. PRISTIQ EXTENDED-RELEASE [Suspect]
     Active Substance: DESVENLAFAXINE SUCCINATE
     Dosage: 100 MG, 1X/DAY [IN THE MORNING]
     Route: 048
     Dates: start: 20181009
  3. LYRICA [Suspect]
     Active Substance: PREGABALIN
     Indication: FIBROMYALGIA
     Dosage: 100 MG, 1X/DAY [ONCE DAILY AT BEDTIME]
     Route: 048
  4. DETROL LA [Suspect]
     Active Substance: TOLTERODINE TARTRATE
     Indication: URINE ABNORMALITY
     Dosage: 4 MG, 1X/DAY [GENERALLY IN THE EVENING]
     Route: 048
     Dates: start: 2018
  5. SKELAXIN [Suspect]
     Active Substance: METAXALONE
     Indication: MUSCLE SPASMS
     Dosage: 800 MG, THREE TIMES DAILY, AS NEEDED
     Route: 048
  6. PRISTIQ EXTENDED-RELEASE [Suspect]
     Active Substance: DESVENLAFAXINE SUCCINATE
     Indication: DEPRESSION
     Dosage: 50 MG, 1X/DAY
     Route: 048
     Dates: start: 201808

REACTIONS (1)
  - Breast cancer [Unknown]

NARRATIVE: CASE EVENT DATE: 20190125
